FAERS Safety Report 13565677 (Version 1)
Quarter: 2017Q2

REPORT INFORMATION
  Report Type: Spontaneous
  Country: US (occurrence: US)
  Receive Date: 20170519
  Receipt Date: 20170519
  Transmission Date: 20170830
  Serious: No
  Sender: FDA-Public Use
  Company Number: US-SHIRE-US201710375

PATIENT
  Age: 72 Year
  Sex: Male

DRUGS (1)
  1. XIIDRA [Suspect]
     Active Substance: LIFITEGRAST
     Indication: DRY EYE
     Dosage: 1 GTT EACH EYE, 2X/DAY:BID
     Route: 047
     Dates: start: 20170421, end: 20170510

REACTIONS (3)
  - Corneal reflex decreased [Unknown]
  - Instillation site pain [Recovered/Resolved]
  - Instillation site reaction [Recovered/Resolved]

NARRATIVE: CASE EVENT DATE: 20170421
